FAERS Safety Report 15869699 (Version 1)
Quarter: 2019Q1

REPORT INFORMATION
  Report Type: Report from Study
  Country: IT (occurrence: SA)
  Receive Date: 20190125
  Receipt Date: 20190125
  Transmission Date: 20190417
  Serious: Yes (Other)
  Sender: FDA-Public Use
  Company Number: IT-MYLANLABS-2019M1005376

PATIENT
  Age: 70 Year
  Sex: Male

DRUGS (2)
  1. INVOKANA [Interacting]
     Active Substance: CANAGLIFLOZIN
     Indication: TYPE 2 DIABETES MELLITUS
     Route: 065
  2. PHENYTOIN. [Suspect]
     Active Substance: PHENYTOIN
     Indication: POST STROKE SEIZURE
     Dosage: 100MG THRICE A DAY
     Route: 065

REACTIONS (2)
  - Incorrect dose administered [Unknown]
  - Drug interaction [Unknown]
